FAERS Safety Report 4383601-9 (Version None)
Quarter: 2004Q2

REPORT INFORMATION
  Report Type: 
  Country: None (occurrence: None)
  Receive Date: 20040618
  Receipt Date: 20040608
  Transmission Date: 20050107
  Serious: Yes (Hospitalization)
  Sender: FDA-Public Use
  Company Number: 04P-087-0263168-00

PATIENT
  Age: 30 Year
  Sex: Male

DRUGS (3)
  1. CEFZON CAPSULE (OMNICEF) (CEFDINIR) (CEFDINIR) [Suspect]
     Dosage: 100 MG, 3 IN 1, ORAL
     Route: 048
     Dates: start: 20040424, end: 20040428
  2. CEFZON CAPSULE (OMNICEF) (CEFDINIR) (CEFDINIR) [Suspect]
     Dosage: 100 MG, 3 IN 1, ORAL
     Route: 048
     Dates: start: 20040519, end: 20040523
  3. BENEXATE HYDROCHLORIDE [Concomitant]

REACTIONS (2)
  - OEDEMA PERIPHERAL [None]
  - RASH PAPULAR [None]
